FAERS Safety Report 8732623 (Version 2)
Quarter: 2012Q4

REPORT INFORMATION
  Report Type: Spontaneous
  Country: DK (occurrence: None)
  Receive Date: 20120801
  Receipt Date: 20120918
  Transmission Date: 20130627
  Serious: Yes (Hospitalization, Other)
  Sender: FDA-Public Use
  Company Number: 2012MA009045

PATIENT
  Age: 44 Year
  Sex: Female

DRUGS (3)
  1. DOXYCYCLINE HYCLATE [Suspect]
     Indication: OTITIS MEDIA ACUTE
     Route: 048
     Dates: start: 20120222, end: 20120622
  2. TRIMETHOPRIM [Suspect]
     Indication: URINARY TRACT INFECTION
     Dates: start: 20120625, end: 20120628
  3. LEVOTHYROXINE SODIUM [Concomitant]

REACTIONS (2)
  - Hepatitis [None]
  - Nausea [None]
